FAERS Safety Report 12442933 (Version 1)
Quarter: 2016Q2

REPORT INFORMATION
  Report Type: Spontaneous
  Country: US (occurrence: None)
  Receive Date: 20160606
  Receipt Date: 20160606
  Transmission Date: 20160815
  Serious: Yes (Life-Threatening, Hospitalization, Disabling)
  Sender: FDA-Public Use
  Company Number: None

PATIENT
  Age: 49 Year
  Sex: Female
  Weight: 86.64 kg

DRUGS (15)
  1. METOPROLOL. [Concomitant]
     Active Substance: METOPROLOL
  2. WELLBUTRIN 300 XL [Concomitant]
  3. TAXOTERE [Concomitant]
     Active Substance: DOCETAXEL
  4. TYLENOL [Concomitant]
     Active Substance: ACETAMINOPHEN
  5. HERCEPTIN [Suspect]
     Active Substance: TRASTUZUMAB
     Indication: BREAST CANCER
     Dosage: Q 3 WEEKS INTO A VEIN
     Route: 042
     Dates: start: 20160308, end: 20160601
  6. COUMADIN [Concomitant]
     Active Substance: WARFARIN SODIUM
  7. SYNTHROID [Concomitant]
     Active Substance: LEVOTHYROXINE SODIUM
  8. VITAMIN D [Concomitant]
     Active Substance: CHOLECALCIFEROL
  9. ZOFRAN [Concomitant]
     Active Substance: ONDANSETRON HYDROCHLORIDE
  10. NUELASTA [Concomitant]
  11. LISINOPRIL. [Concomitant]
     Active Substance: LISINOPRIL
  12. ALLEGRA [Concomitant]
     Active Substance: FEXOFENADINE HYDROCHLORIDE
  13. CARBOPLATIN. [Concomitant]
     Active Substance: CARBOPLATIN
  14. CLARITIN [Concomitant]
     Active Substance: LORATADINE
  15. ATIVAN [Concomitant]
     Active Substance: LORAZEPAM

REACTIONS (3)
  - Arrhythmia [None]
  - Cardiac failure [None]
  - Cardiomyopathy [None]

NARRATIVE: CASE EVENT DATE: 20160502
